FAERS Safety Report 7346340-8 (Version None)
Quarter: 2011Q1

REPORT INFORMATION
  Report Type: 
  Country: None (occurrence: None)
  Receive Date: 20110311
  Receipt Date: 20100908
  Transmission Date: 20110831
  Serious: Yes (Hospitalization, Other)
  Sender: FDA-Public Use
  Company Number: US-BAYER-201018567NA

PATIENT
  Sex: Female
  Weight: 77 kg

DRUGS (12)
  1. YASMIN [Suspect]
     Indication: PRODUCT USED FOR UNKNOWN INDICATION
     Dosage: UNK UNK, UNK
     Route: 048
     Dates: start: 20080101, end: 20090101
  2. YASMIN [Suspect]
     Dosage: UNK
  3. OCELLA [Suspect]
  4. TRINESSA [Suspect]
     Indication: CONTRACEPTION
     Dosage: UNK
  5. ADVIL [Concomitant]
     Dosage: UNK
  6. KETOROLAC [Concomitant]
  7. METOCLOPRAMIDE HCL [Concomitant]
  8. YAZ [Suspect]
     Indication: PRODUCT USED FOR UNKNOWN INDICATION
     Dosage: UNK UNK, UNK
     Route: 048
     Dates: start: 20080101, end: 20090101
  9. YAZ [Suspect]
  10. UNCODEABLE ^UNCLASSIFIABLE^ [Concomitant]
  11. OCELLA [Suspect]
     Indication: PRODUCT USED FOR UNKNOWN INDICATION
     Dosage: UNK
     Dates: start: 20080101, end: 20090101
  12. OXYCODONE HCL [Concomitant]

REACTIONS (5)
  - CHOLELITHIASIS [None]
  - PANCREATITIS [None]
  - CHOLECYSTITIS CHRONIC [None]
  - PAIN [None]
  - LIVER FUNCTION TEST ABNORMAL [None]
